FAERS Safety Report 5135816-X (Version None)
Quarter: 2006Q4

REPORT INFORMATION
  Report Type: 
  Country: None (occurrence: None)
  Receive Date: 20061026
  Receipt Date: 20061020
  Transmission Date: 20070319
  Serious: Yes (Hospitalization)
  Sender: FDA-Public Use
  Company Number: JP-BOEHRINGER INGELHEIM PHARMACEUTICALS, INC.-2006-BP-12330NB

PATIENT
  Age: 58 Year
  Sex: Female

DRUGS (5)
  1. BI-SIFROL TABLETS [Suspect]
     Indication: PARKINSON'S DISEASE
     Route: 048
     Dates: start: 20060906
  2. DANTRIUM [Suspect]
     Indication: HYPOTONIA
     Route: 048
     Dates: start: 20060906
  3. ACTOS [Concomitant]
     Indication: DIABETES MELLITUS
     Route: 048
     Dates: start: 20060401
  4. FAMOTIDINE [Concomitant]
     Route: 048
  5. MEDET [Concomitant]
     Indication: DIABETES MELLITUS
     Route: 048

REACTIONS (1)
  - PLATELET COUNT DECREASED [None]
